FAERS Safety Report 4579672-7 (Version None)
Quarter: 2005Q1

REPORT INFORMATION
  Report Type: 
  Country: None (occurrence: None)
  Receive Date: 20050210
  Receipt Date: 20050126
  Transmission Date: 20050727
  Serious: Yes (Death)
  Sender: FDA-Public Use
  Company Number: 2004AL000792

PATIENT
  Age: 31 Year
  Sex: Male

DRUGS (6)
  1. VERAPAMIL HYDROCHLORIDE [Suspect]
     Dosage: PO
     Route: 048
  2. TRAZODONE HCL [Suspect]
     Dosage: PO
     Route: 048
  3. IBUPROFEN ORAL SUSPENSION USP, 100 MG/5ML (RX) [Suspect]
     Dosage: PO
     Route: 048
  4. IBUPROFEN ORAL SUSPENSION USP, 100 MG/5ML (OTC) (ALPHARMA) [Suspect]
     Dosage: PO
     Route: 048
  5. HYDRAMINE [Suspect]
     Dosage: PO
     Route: 048
  6. HYDRAMINE [Suspect]
     Dosage: PO
     Route: 048

REACTIONS (5)
  - CARDIAC ARREST [None]
  - COMA [None]
  - COMPLETED SUICIDE [None]
  - INTENTIONAL MISUSE [None]
  - PULMONARY OEDEMA [None]
